FAERS Safety Report 8377879-4 (Version None)
Quarter: 2012Q2

REPORT INFORMATION
  Report Type: 
  Country: None (occurrence: None)
  Receive Date: 20120522
  Receipt Date: 20120516
  Transmission Date: 20120825
  Serious: Yes (Hospitalization)
  Sender: FDA-Public Use
  Company Number: FR-PFIZER INC-2012077811

PATIENT
  Age: 36 Year
  Sex: Male
  Weight: 64.5 kg

DRUGS (27)
  1. VFEND [Suspect]
     Dosage: 400 MG, UNK
     Dates: start: 20120218, end: 20120223
  2. ROVAMYCINE [Concomitant]
     Dosage: UNK
     Dates: start: 20120128, end: 20120201
  3. VFEND [Suspect]
     Dosage: 600 MG, UNK
     Dates: start: 20120217, end: 20120217
  4. VANCOMYCIN [Concomitant]
     Indication: PYREXIA
     Dosage: UNK
     Dates: start: 20120212, end: 20120220
  5. VFEND [Suspect]
     Indication: ASPERGILLOSIS
     Dosage: 560 MG, UNK
     Dates: start: 20120213, end: 20120213
  6. CYTARABINE [Concomitant]
     Dosage: UNK
     Route: 037
     Dates: start: 20120207
  7. DEPO-MEDROL [Concomitant]
     Dosage: 40 MG, UNK
     Route: 037
     Dates: start: 20120207
  8. TAZOBACTAM [Concomitant]
     Indication: ENCEPHALITIS
     Dosage: 12 G, DAILY
     Dates: start: 20120203, end: 20120203
  9. DAUNORUBICIN [Concomitant]
     Dosage: UNK
     Dates: start: 20120130, end: 20120201
  10. DEPO-MEDROL [Concomitant]
     Dosage: UNK
     Route: 037
     Dates: start: 20120209
  11. ROCEPHIN [Concomitant]
     Indication: PYREXIA
     Dosage: UNK
     Dates: start: 20120127, end: 20120128
  12. CYTARABINE [Concomitant]
     Dosage: UNK
     Dates: start: 20120128, end: 20120204
  13. METHOTREXATE [Concomitant]
     Dosage: 15 MG, UNK
     Route: 037
     Dates: start: 20120207
  14. FASTURTEC [Concomitant]
     Dosage: UNK
  15. HYDREA [Concomitant]
     Dosage: UNK
  16. VFEND [Suspect]
     Dosage: 380 MG, UNK
     Dates: start: 20120214, end: 20120216
  17. NEXIUM [Concomitant]
     Dosage: 40 MG, UNK
     Dates: start: 20120217, end: 20120223
  18. ROCEPHIN [Concomitant]
     Dosage: UNK
     Dates: start: 20120201, end: 20120209
  19. TAZOBACTAM [Concomitant]
     Dosage: UNK
     Dates: start: 20120217
  20. METHOTREXATE [Concomitant]
     Dosage: UNK
     Route: 037
     Dates: start: 20120209
  21. VFEND [Suspect]
     Dosage: 200 MG, UNK
     Dates: start: 20120224, end: 20120224
  22. OFLOXACIN [Concomitant]
     Dosage: UNK
  23. FLAGYL [Concomitant]
     Indication: BRAIN ABSCESS
     Dosage: UNK
     Dates: start: 20120203, end: 20120209
  24. TAZOBACTAM [Concomitant]
     Dosage: UNK
     Dates: start: 20120209, end: 20120215
  25. CYTARABINE [Concomitant]
     Dosage: UNK
     Route: 037
     Dates: start: 20120209, end: 20120212
  26. CYTARABINE [Concomitant]
     Dosage: UNK
     Dates: start: 20120210, end: 20120212
  27. DAUNORUBICIN [Concomitant]
     Dosage: UNK
     Dates: start: 20120210, end: 20120211

REACTIONS (3)
  - HALLUCINATION, VISUAL [None]
  - COMA [None]
  - HALLUCINATION, AUDITORY [None]
